FAERS Safety Report 11374913 (Version 2)
Quarter: 2015Q3

REPORT INFORMATION
  Report Type: Spontaneous
  Country: CA (occurrence: CA)
  Receive Date: 20150813
  Receipt Date: 20150928
  Transmission Date: 20151125
  Serious: Yes (Hospitalization, Other)
  Sender: FDA-Public Use
  Company Number: CA-ROCHE-1460520

PATIENT
  Age: 56 Year
  Sex: Female

DRUGS (8)
  1. SOVALDI [Suspect]
     Active Substance: SOFOSBUVIR
     Indication: CHRONIC HEPATITIS C
     Route: 048
     Dates: end: 20140827
  2. GALEXOS [Suspect]
     Active Substance: SIMEPREVIR
     Indication: CHRONIC HEPATITIS C
     Route: 048
     Dates: end: 20140827
  3. PEGETRON [Suspect]
     Active Substance: PEGINTERFERON ALFA-2B\RIBAVIRIN
     Route: 048
  4. PEGETRON [Suspect]
     Active Substance: PEGINTERFERON ALFA-2B\RIBAVIRIN
     Indication: CHRONIC HEPATITIS C
     Route: 048
  5. PEGASYS [Suspect]
     Active Substance: PEGINTERFERON ALFA-2A
     Indication: CHRONIC HEPATITIS C
     Route: 058
     Dates: end: 20140827
  6. METFORMIN [Concomitant]
     Active Substance: METFORMIN HYDROCHLORIDE
  7. COPEGUS [Suspect]
     Active Substance: RIBAVIRIN
     Indication: CHRONIC HEPATITIS C
     Route: 048
     Dates: start: 20140719, end: 20140827
  8. NADOLOL. [Concomitant]
     Active Substance: NADOLOL

REACTIONS (6)
  - Hepatic function abnormal [Unknown]
  - Off label use [Unknown]
  - Hepatic failure [Unknown]
  - Abdominal pain [Unknown]
  - Renal failure [Unknown]
  - Blood test abnormal [Unknown]
